FAERS Safety Report 8911571 (Version 1)
Quarter: 2012Q4

REPORT INFORMATION
  Report Type: 
  Country: US (occurrence: US)
  Receive Date: 20121115
  Receipt Date: 20121115
  Transmission Date: 20130627
  Serious: Yes (Other)
  Sender: FDA-Public Use
  Company Number: US-PFIZER INC-2012284364

PATIENT
  Age: 57 Year
  Sex: Male

DRUGS (4)
  1. LIPITOR [Suspect]
     Indication: BLOOD CHOLESTEROL ABNORMAL
     Dosage: 40 mg, once daily at bed time
     Route: 048
     Dates: start: 20111014
  2. LISINOPRIL [Concomitant]
     Dosage: 5 mg, 1x/day
     Route: 048
     Dates: start: 20121107
  3. ASPIRIN [Concomitant]
     Dosage: 81 mg, 1x/day
     Route: 048
     Dates: start: 20071218
  4. GLEEVEC [Concomitant]
     Dosage: UNK
     Dates: start: 20071218

REACTIONS (1)
  - Essential hypertension [Unknown]
